FAERS Safety Report 8583779-7 (Version None)
Quarter: 2012Q3

REPORT INFORMATION
  Report Type: 
  Country: None (occurrence: None)
  Receive Date: 20120810
  Receipt Date: 20120727
  Transmission Date: 20120928
  Serious: Yes (Hospitalization, Disabling, Other)
  Sender: FDA-Public Use
  Company Number: US-009507513-1205USA00037

PATIENT

DRUGS (8)
  1. MAGNESIUM (UNSPECIFIED) [Concomitant]
     Dosage: 250 MG, UNK
  2. CALCIUM (UNSPECIFIED) (+) VITAMIN D (UNSPECIFIED) [Concomitant]
     Dosage: UNK
     Dates: start: 20020101
  3. FOSAMAX [Suspect]
     Indication: OSTEOPOROSIS
     Dosage: 70 MG, UNK
     Route: 048
     Dates: end: 20080101
  4. CLARITIN-D [Concomitant]
     Indication: HYPERSENSITIVITY
  5. KEFLEX [Concomitant]
  6. FOSAMAX [Suspect]
  7. BONIVA [Suspect]
     Indication: OSTEOPOROSIS
     Dosage: 150 MG, UNK
     Route: 048
     Dates: start: 20080804, end: 20090101
  8. FOSAMAX PLUS D [Suspect]
     Indication: OSTEOPOROSIS
     Dosage: 70 MG, UNK
     Route: 048
     Dates: start: 20070102, end: 20080801

REACTIONS (65)
  - HYSTERECTOMY [None]
  - RECTAL FISTULA REPAIR [None]
  - TONSILLECTOMY [None]
  - BRADYCARDIA [None]
  - HYPERTROPHY [None]
  - AUTOIMMUNE THYROIDITIS [None]
  - HAND FRACTURE [None]
  - TOOTH EXTRACTION [None]
  - DEPRESSION [None]
  - LIPOMA [None]
  - THYROIDITIS [None]
  - MUSCULOSKELETAL PAIN [None]
  - FLATULENCE [None]
  - PRURITUS [None]
  - LIP INJURY [None]
  - FOOT FRACTURE [None]
  - MUSCULOSKELETAL STIFFNESS [None]
  - JOINT INJURY [None]
  - WEIGHT DECREASED [None]
  - EXCORIATION [None]
  - PARATHYROID TUMOUR BENIGN [None]
  - HYPOPHOSPHATAEMIA [None]
  - FEMUR FRACTURE [None]
  - NASAL OEDEMA [None]
  - HYPERCHOLESTEROLAEMIA [None]
  - HAEMORRHOIDS [None]
  - DIABETES MELLITUS [None]
  - ARTHRALGIA [None]
  - GASTROOESOPHAGEAL REFLUX DISEASE [None]
  - FACIAL BONES FRACTURE [None]
  - HYPERTENSION [None]
  - HYPERTONIC BLADDER [None]
  - NOCTURIA [None]
  - CHOKING [None]
  - HYPERTHYROIDISM [None]
  - VAGINAL INFECTION [None]
  - SPIDER VEIN [None]
  - LICHEN PLANUS [None]
  - HYPOTHYROIDISM [None]
  - MALAISE [None]
  - DIARRHOEA [None]
  - MYALGIA [None]
  - ABDOMINAL DISCOMFORT [None]
  - OOPHORECTOMY [None]
  - LYMPHADENECTOMY [None]
  - HOT FLUSH [None]
  - DYSPNOEA [None]
  - ANXIETY [None]
  - ACROCHORDON [None]
  - LIP DRY [None]
  - CONSTIPATION [None]
  - OSTEOPOROSIS [None]
  - STRESS FRACTURE [None]
  - FATIGUE [None]
  - NODULE [None]
  - DYSPNOEA EXERTIONAL [None]
  - BLOOD MAGNESIUM DECREASED [None]
  - LOW TURNOVER OSTEOPATHY [None]
  - ANAEMIA POSTOPERATIVE [None]
  - COLITIS [None]
  - COLONIC POLYP [None]
  - ABSCESS ORAL [None]
  - CELLULITIS [None]
  - DYSHIDROSIS [None]
  - HYPOMAGNESAEMIA [None]
